FAERS Safety Report 4486928-5 (Version None)
Quarter: 2004Q3

REPORT INFORMATION
  Report Type: 
  Country: None (occurrence: None)
  Receive Date: 20040921
  Receipt Date: 20031010
  Transmission Date: 20050211
  Serious: Yes (Other)
  Sender: FDA-Public Use
  Company Number: 163-20785-03100244

PATIENT
  Age: 65 Year
  Sex: Male

DRUGS (6)
  1. THALOMID [Suspect]
     Indication: MULTIPLE MYELOMA
     Dosage: SEE IMAGE
     Route: 048
     Dates: start: 20021227, end: 20030109
  2. THALOMID [Suspect]
     Indication: MULTIPLE MYELOMA
     Dosage: SEE IMAGE
     Route: 048
     Dates: start: 20030110, end: 20030121
  3. DEXAMETHASONE [Suspect]
     Indication: MULTIPLE MYELOMA
     Dosage: 40 MG, DAILY, ORAL
     Route: 048
     Dates: start: 20030121, end: 20030124
  4. CISPLATIN [Suspect]
     Indication: MULTIPLE MYELOMA
     Dosage: 33 MG, DAILY, INTRAVENOUS
     Route: 042
     Dates: start: 20030121, end: 20030124
  5. ETOPOSIDE [Suspect]
     Indication: MULTIPLE MYELOMA
     Dosage: 88 MG, DAILY, INTRAVENOUS
     Route: 042
     Dates: start: 20030121, end: 20030124
  6. CYCLOPHOSPHAMIDE [Suspect]
     Indication: MULTIPLE MYELOMA
     Dosage: 880 MG, DAILY, INTRAVENOUS
     Route: 042
     Dates: start: 20030121, end: 20030124

REACTIONS (1)
  - DEEP VEIN THROMBOSIS [None]
